FAERS Safety Report 24456342 (Version 2)
Quarter: 2024Q4

REPORT INFORMATION
  Report Type: Report from Study
  Country: US (occurrence: US)
  Receive Date: 20241017
  Receipt Date: 20241018
  Transmission Date: 20250115
  Serious: No
  Sender: ROCHE
  Company Number: US-ROCHE-3510742

PATIENT
  Sex: Female
  Weight: 39.46 kg

DRUGS (2)
  1. RITUXAN [Suspect]
     Active Substance: RITUXIMAB
     Indication: Haemophagocytic lymphohistiocytosis
     Dosage: START DATE 16-FEB-2023, END DATE 02-MAR-2023, RESTART DATE 16-MAR-2023, END DATE 13-JUL-2023
     Route: 065
     Dates: start: 20230216, end: 20230713
  2. RITUXAN HYCELA [Suspect]
     Active Substance: HYALURONIDASE (HUMAN RECOMBINANT)\RITUXIMAB
     Indication: Haemophagocytic lymphohistiocytosis
     Route: 065
     Dates: start: 20230302, end: 20230316

REACTIONS (3)
  - Off label use [Unknown]
  - Off label use [Unknown]
  - No adverse event [Unknown]

NARRATIVE: CASE EVENT DATE: 20230216
